FAERS Safety Report 5356105-4 (Version None)
Quarter: 2007Q2

REPORT INFORMATION
  Report Type: 
  Country: None (occurrence: None)
  Receive Date: 20070613
  Receipt Date: 20070530
  Transmission Date: 20071010
  Serious: Yes (Hospitalization, Other)
  Sender: FDA-Public Use
  Company Number: US-ELI_LILLY_AND_COMPANY-US200703006234

PATIENT
  Age: 43 Year
  Sex: Male

DRUGS (3)
  1. CYMBALTA [Suspect]
     Indication: DEPRESSION
     Dosage: 30 MG, DAILY (1/D)
     Route: 048
  2. SEROQUEL [Concomitant]
     Indication: DEPRESSION
  3. BENZODIAZEPINE DERIVATIVES [Concomitant]

REACTIONS (3)
  - BLOOD CREATININE INCREASED [None]
  - COMA [None]
  - INTENTIONAL OVERDOSE [None]
